FAERS Safety Report 13167843 (Version 1)
Quarter: 2017Q1

REPORT INFORMATION
  Report Type: Spontaneous
  Country: SI (occurrence: SI)
  Receive Date: 20170131
  Receipt Date: 20170131
  Transmission Date: 20170428
  Serious: Yes (Other)
  Sender: FDA-Public Use
  Company Number: SI-BAYER-2017-012808

PATIENT
  Age: 10 Year
  Sex: Male

DRUGS (1)
  1. ASPIRIN. [Suspect]
     Active Substance: ASPIRIN
     Indication: NASOPHARYNGITIS
     Dosage: 2 DF, UNK

REACTIONS (4)
  - Medication monitoring error [None]
  - Drug administered to patient of inappropriate age [None]
  - Drug administration error [None]
  - Cyanosis [None]
